FAERS Safety Report 23971652 (Version 2)
Quarter: 2024Q3

REPORT INFORMATION
  Report Type: Spontaneous
  Country: US (occurrence: US)
  Receive Date: 20240613
  Receipt Date: 20240708
  Transmission Date: 20241017
  Serious: Yes (Death)
  Sender: TEVA
  Company Number: US-TEVA-VS-3207270

PATIENT
  Age: 17 Month
  Sex: Male

DRUGS (7)
  1. CISPLATIN [Suspect]
     Active Substance: CISPLATIN
     Indication: Central nervous system neoplasm
     Dosage: RECEIVED 3 CYCLES
     Route: 065
  2. CYCLOPHOSPHAMIDE [Suspect]
     Active Substance: CYCLOPHOSPHAMIDE
     Indication: Central nervous system neoplasm
     Dosage: RECEIVED 3 CYCLES
     Route: 065
  3. THIOTEPA [Suspect]
     Active Substance: THIOTEPA
     Indication: Central nervous system neoplasm
     Dosage: RECEIVED 1 CYCLE
     Route: 065
  4. ETOPOSIDE [Suspect]
     Active Substance: ETOPOSIDE
     Indication: Central nervous system neoplasm
     Dosage: RECEIVED 3 CYCLES, LATER RECEIVED 1 CYCLE
     Route: 065
  5. CARBOPLATIN [Suspect]
     Active Substance: CARBOPLATIN
     Indication: Central nervous system neoplasm
     Dosage: RECEIVED 1 CYCLE
     Route: 065
  6. VINCRISTINE [Suspect]
     Active Substance: VINCRISTINE
     Indication: Central nervous system neoplasm
     Dosage: RECEIVED 3 CYCLES
     Route: 065
  7. METHOTREXATE [Suspect]
     Active Substance: METHOTREXATE
     Indication: Central nervous system neoplasm
     Dosage: RECEIVED 3 CYCLES
     Route: 065

REACTIONS (1)
  - Death [Fatal]
